FAERS Safety Report 5120906-8 (Version None)
Quarter: 2006Q4

REPORT INFORMATION
  Report Type: 
  Country: None (occurrence: None)
  Receive Date: 20061003
  Receipt Date: 20061003
  Transmission Date: 20070319
  Serious: Yes (Hospitalization)
  Sender: FDA-Public Use
  Company Number: None

PATIENT
  Sex: Female
  Weight: 70 kg

DRUGS (3)
  1. DAUNORUBICIN HCL [Suspect]
     Dosage: 88 MG
  2. DEXAMETHASONE TAB [Suspect]
     Dosage: 247.8 MG
  3. CYTARABINE [Suspect]
     Dosage: 70 MG

REACTIONS (6)
  - BACILLUS INFECTION [None]
  - DISSEMINATED INTRAVASCULAR COAGULATION [None]
  - HYPOTENSION [None]
  - HYPOXIA [None]
  - PULMONARY HAEMORRHAGE [None]
  - PYREXIA [None]
